FAERS Safety Report 8289439-4 (Version None)
Quarter: 2012Q1

REPORT INFORMATION
  Report Type: 
  Country: None (occurrence: None)
  Receive Date: 20120316
  Receipt Date: 20090716
  Transmission Date: 20120608
  Serious: Yes (Hospitalization)
  Sender: FDA-Public Use
  Company Number: PHEH2009US07638

PATIENT
  Age: 75 Year
  Sex: Female
  Weight: 54.4 kg

DRUGS (2)
  1. TARKA [Suspect]
     Dosage: 2/240 MG, HALF TABLET, UNK
  2. TEKTURNA [Suspect]
     Indication: HYPERTENSION
     Dosage: 150 MG, QD, ORAL
     Route: 048
     Dates: start: 20090623, end: 20090714

REACTIONS (1)
  - SWOLLEN TONGUE [None]
